FAERS Safety Report 6631847-9 (Version None)
Quarter: 2010Q1

REPORT INFORMATION
  Report Type: 
  Country: None (occurrence: None)
  Receive Date: 20100312
  Receipt Date: 20100304
  Transmission Date: 20100710
  Serious: Yes (Other)
  Sender: FDA-Public Use
  Company Number: GB-ROCHE-685241

PATIENT
  Sex: Male
  Weight: 84.9 kg

DRUGS (2)
  1. PEGASYS [Suspect]
     Indication: HEPATITIS C POSITIVE
     Route: 058
     Dates: start: 20090123, end: 20091209
  2. COPEGUS [Suspect]
     Indication: HEPATITIS C POSITIVE
     Route: 048
     Dates: start: 20090123, end: 20091209

REACTIONS (2)
  - CONVULSION [None]
  - INCONTINENCE [None]
